FAERS Safety Report 9191114 (Version 1)
Quarter: 2013Q1

REPORT INFORMATION
  Report Type: Spontaneous
  Country: US (occurrence: US)
  Receive Date: 20130326
  Receipt Date: 20130326
  Transmission Date: 20140127
  Serious: Yes (Other)
  Sender: FDA-Public Use
  Company Number: US-ELI_LILLY_AND_COMPANY-US201303006032

PATIENT
  Sex: Female

DRUGS (3)
  1. CYMBALTA [Suspect]
     Indication: DEPRESSION
     Dosage: 60 MG, QD
  2. LOMOTIL [Concomitant]
  3. CHOLESTYRAMINE [Concomitant]
     Indication: DIARRHOEA
     Dosage: UNK

REACTIONS (3)
  - Blister [Unknown]
  - Skin exfoliation [Unknown]
  - Panic reaction [Unknown]
